FAERS Safety Report 8525973-7 (Version None)
Quarter: 2012Q3

REPORT INFORMATION
  Report Type: 
  Country: None (occurrence: None)
  Receive Date: 20120720
  Receipt Date: 20100712
  Transmission Date: 20120928
  Serious: Yes (Death, Other)
  Sender: FDA-Public Use
  Company Number: PHHY2010TH094269

PATIENT
  Sex: Female

DRUGS (1)
  1. TASIGNA [Suspect]
     Dosage: UNK UKN, UNK
     Dates: start: 20100527

REACTIONS (3)
  - LUNG INFECTION [None]
  - NEOPLASM PROGRESSION [None]
  - NEOPLASM MALIGNANT [None]
